FAERS Safety Report 25503175 (Version 1)
Quarter: 2025Q3

REPORT INFORMATION
  Report Type: Spontaneous
  Country: US (occurrence: US)
  Receive Date: 20250702
  Receipt Date: 20250702
  Transmission Date: 20251020
  Serious: Yes (Hospitalization, Other)
  Sender: BAXTER
  Company Number: US-BAXTER-2025BAX017299

PATIENT
  Age: 62 Year
  Sex: Male
  Weight: 71.2 kg

DRUGS (10)
  1. CYCLOPHOSPHAMIDE [Suspect]
     Active Substance: CYCLOPHOSPHAMIDE
     Indication: Lymphodepletion
     Dosage: 1940 MG, QD (1000 MG/M2), INTRAVENOUS INFUSION (REGIMEN 1 - 3) (D-6)
     Route: 042
     Dates: start: 20250308, end: 20250310
  2. VANCOMYCIN [Suspect]
     Active Substance: VANCOMYCIN
     Route: 065
     Dates: start: 20250421
  3. CEFEPIME [Suspect]
     Active Substance: CEFEPIME HYDROCHLORIDE
     Route: 065
     Dates: start: 20250421
  4. FLUDARABINE [Suspect]
     Active Substance: FLUDARABINE PHOSPHATE
     Indication: Lymphodepletion
     Dosage: 57.5 MG QD, (30 MG/M2) INTRAVENOUS INFUSION (REGIMEN 1 - 4) (D-6)
     Route: 042
     Dates: start: 20250307, end: 20250310
  5. HYDROCORTISONE [Concomitant]
     Active Substance: HYDROCORTISONE
     Route: 065
     Dates: start: 20250422
  6. NOXAFIL [Concomitant]
     Active Substance: POSACONAZOLE
     Route: 065
     Dates: start: 20250422
  7. MACROBID [Concomitant]
     Active Substance: NITROFURANTOIN\NITROFURANTOIN MONOHYDRATE
     Route: 065
     Dates: start: 20250406, end: 20250417
  8. VOLTAREN [Concomitant]
     Active Substance: DICLOFENAC SODIUM
     Route: 065
     Dates: start: 20250326
  9. GANCICLOVIR [Concomitant]
     Active Substance: GANCICLOVIR
     Route: 065
     Dates: start: 20250512
  10. LETERMOVIR [Concomitant]
     Active Substance: LETERMOVIR
     Route: 065
     Dates: start: 20210904

REACTIONS (21)
  - Chronic graft versus host disease in skin [Not Recovered/Not Resolved]
  - Chronic graft versus host disease oral [Not Recovered/Not Resolved]
  - Condition aggravated [Not Recovered/Not Resolved]
  - Cellulitis [Unknown]
  - Cytomegalovirus infection reactivation [Not Recovered/Not Resolved]
  - Decreased appetite [Not Recovered/Not Resolved]
  - Swelling face [Unknown]
  - Hypoaesthesia [Unknown]
  - Rash pruritic [Recovering/Resolving]
  - Hypersomnia [Unknown]
  - Oral pain [Not Recovered/Not Resolved]
  - Hypophagia [Not Recovered/Not Resolved]
  - Rash maculo-papular [Unknown]
  - Skin lesion [Unknown]
  - Lichen planus [Unknown]
  - Dysphagia [Not Recovered/Not Resolved]
  - Fatigue [Unknown]
  - Asthenia [Unknown]
  - Myalgia [Unknown]
  - Erythema [Unknown]
  - Mucosal inflammation [Unknown]

NARRATIVE: CASE EVENT DATE: 20250418
